FAERS Safety Report 15975013 (Version 1)
Quarter: 2019Q1

REPORT INFORMATION
  Report Type: Spontaneous
  Country: US (occurrence: US)
  Receive Date: 20190218
  Receipt Date: 20190218
  Transmission Date: 20190418
  Serious: No
  Sender: FDA-Public Use
  Company Number: US-PFIZER INC-2017367604

PATIENT
  Age: 14 Year
  Sex: Male

DRUGS (2)
  1. GENOTROPIN [Suspect]
     Active Substance: SOMATROPIN
     Indication: DIGEORGE^S SYNDROME
     Dosage: 1.6 MG, DAILY(12MG CARTRIDGE/1.6MG DAILY)
     Dates: start: 20150829
  2. GENOTROPIN [Suspect]
     Active Substance: SOMATROPIN
     Dosage: 1.2 MG, DAILY
     Dates: start: 20150829, end: 201807

REACTIONS (5)
  - Product use in unapproved indication [Unknown]
  - Blood phosphorus increased [Unknown]
  - Calcium ionised decreased [Unknown]
  - Insulin-like growth factor increased [Unknown]
  - Blood calcium decreased [Unknown]
